FAERS Safety Report 8822100 (Version 2)
Quarter: 2012Q4

REPORT INFORMATION
  Report Type: 
  Country: JP (occurrence: JP)
  Receive Date: 20121003
  Receipt Date: 20121015
  Transmission Date: 20130627
  Serious: Yes (Other)
  Sender: FDA-Public Use
  Company Number: JP-RANBAXY-2012RR-60684

PATIENT
  Age: 67 Year
  Sex: Female

DRUGS (5)
  1. RISPERIDONE [Suspect]
     Indication: BIPOLAR DISORDER
     Dosage: gradually increased
     Route: 065
  2. RISPERIDONE [Interacting]
     Indication: BIPOLAR DISORDER
     Dosage: 5 mg/day, gradually reduced over a 1-month period
     Route: 065
  3. RISPERIDONE [Interacting]
     Indication: BIPOLAR DISORDER
     Dosage: 3 mg/day
     Route: 065
  4. LAMOTRIGINE [Interacting]
     Indication: DEPRESSION
     Dosage: 25 mg, qod
     Route: 065
  5. BIPERIDEN [Interacting]
     Indication: DEPRESSION
     Dosage: 1 mg/day
     Route: 065

REACTIONS (2)
  - Neuroleptic malignant syndrome [Recovered/Resolved]
  - Drug interaction [Recovered/Resolved]
